FAERS Safety Report 9519756 (Version 1)
Quarter: 2013Q1

REPORT INFORMATION
  Report Type: Spontaneous
  Country: US (occurrence: None)
  Receive Date: 20130305
  Receipt Date: 20130305
  Transmission Date: 20140127
  Serious: Yes (Other)
  Sender: FDA-Public Use
  Company Number: 163-21880-12120769

PATIENT
  Age: 69 Year
  Sex: Female
  Weight: 48.99 kg

DRUGS (10)
  1. REVLIMID [Suspect]
     Indication: PLASMA CELL MYELOMA
     Dosage: 15 MG, 21 IN 21 D, PO
     Route: 048
     Dates: start: 20110916, end: 20121206
  2. VELCADE [Concomitant]
  3. ZOMETA (ZOLEDRONIC ACID) (UNKNOWN) [Concomitant]
  4. ALLOPURINOL (ALLOPURINOL) (UNKNOWN) [Concomitant]
  5. DEXAMETHASONE (DEXAMETHASONE) (UNKNOWN) [Concomitant]
  6. VITAMIN D (ERGOCALCIFEROL) (UNKNOWN) [Concomitant]
  7. CALCIUM CARBONATE (CALCIUM CARBONATE) (UNKNOWN) [Concomitant]
  8. HYDROCODONE/ACETAMINOPHEN (REMEDEINE) (UNKNOWN) [Concomitant]
  9. ZOFRAN (ONANSETRON HYDROCHLORIDE) (UNKNOWN) [Concomitant]
  10. CEFDINIR (CEFDINIR) (UNKNOWN) [Concomitant]

REACTIONS (3)
  - Sinusitis [None]
  - Medication error [None]
  - No adverse event [None]
